FAERS Safety Report 7921181-9 (Version None)
Quarter: 2011Q4

REPORT INFORMATION
  Report Type: 
  Country: None (occurrence: None)
  Receive Date: 20111117
  Receipt Date: 20111108
  Transmission Date: 20120403
  Serious: Yes (Hospitalization)
  Sender: FDA-Public Use
  Company Number: JP-JNJFOC-20110201681

PATIENT
  Age: 50 Year
  Sex: Male
  Weight: 58 kg

DRUGS (18)
  1. OXAROL [Concomitant]
     Indication: PSORIASIS
  2. EPADEL [Concomitant]
     Indication: HYPERLIPIDAEMIA
     Route: 048
  3. ISONIAZID [Concomitant]
     Indication: ANTIBIOTIC PROPHYLAXIS
     Route: 048
     Dates: start: 20100717
  4. URALYT-U [Concomitant]
     Indication: HYPERURICAEMIA
     Dosage: START DATE UNKNOWN, BEFORE THE START OF INFLIXIMAB THERAPY
     Route: 048
  5. REMICADE [Suspect]
     Route: 042
     Dates: start: 20101023
  6. EPADEL [Concomitant]
     Dosage: START DATE UNKNOWN, BEFORE THE START OF INFLIXIMAB THERAPY
     Route: 048
  7. PYDOXAL [Concomitant]
     Indication: PROPHYLAXIS
     Route: 048
     Dates: start: 20100717
  8. REMICADE [Suspect]
     Indication: PSORIASIS
     Route: 042
     Dates: start: 20100716
  9. REMICADE [Suspect]
     Route: 042
     Dates: start: 20100730
  10. URSO 250 [Concomitant]
     Indication: HEPATIC FUNCTION ABNORMAL
     Dosage: START DATE UNKNOWN, BEFORE THE START OF INFLIXIMAB THERAPY
     Route: 048
  11. ALLOPURINOL [Concomitant]
     Indication: HYPERURICAEMIA
     Dosage: START DATE UNKNOWN, BEFORE THE START OF INFLIXIMAB THERAPY
     Route: 048
  12. ANTEBATE [Concomitant]
     Indication: PSORIASIS
  13. REMICADE [Suspect]
     Route: 042
     Dates: start: 20100828
  14. OLOPATADINE HCL [Concomitant]
     Indication: PSORIASIS
     Route: 048
     Dates: start: 20101001
  15. NEORAL [Concomitant]
     Indication: PSORIASIS
     Route: 048
  16. REMICADE [Suspect]
     Route: 042
     Dates: start: 20101218
  17. ZETIA [Concomitant]
     Indication: HYPERLIPIDAEMIA
     Dosage: START DATE UNKNOWN, BEFORE THE START OF INFLIXIMAB THERAPY
     Route: 048
  18. HUMALIN [Concomitant]
     Indication: DIABETES MELLITUS
     Route: 058
     Dates: start: 20110105

REACTIONS (1)
  - PANCREATITIS ACUTE [None]
